FAERS Safety Report 9167094 (Version 2)
Quarter: 2013Q2

REPORT INFORMATION
  Report Type: Spontaneous
  Country: US (occurrence: None)
  Receive Date: 20130228
  Receipt Date: 20130403
  Transmission Date: 20140414
  Serious: No
  Sender: FDA-Public Use
  Company Number: NXG-13-001

PATIENT
  Sex: Female

DRUGS (1)
  1. PEG 255GM [Suspect]
     Indication: INTESTINAL OBSTRUCTION

REACTIONS (3)
  - Muscle spasms [None]
  - Dizziness [None]
  - Somnolence [None]
